FAERS Safety Report 25259351 (Version 1)
Quarter: 2025Q2

REPORT INFORMATION
  Report Type: Spontaneous
  Country: US (occurrence: None)
  Receive Date: 20250430
  Receipt Date: 20250430
  Transmission Date: 20250716
  Serious: Yes (unspecified)
  Sender: FDA-CTU
  Company Number: None

PATIENT
  Age: 63 Year
  Sex: Female
  Weight: 61.2 kg

DRUGS (14)
  1. CLINDAMYCIN HYDROCHLORIDE [Suspect]
     Active Substance: CLINDAMYCIN HYDROCHLORIDE
     Indication: Infection prophylaxis
     Dosage: OTHER QUANTITY : 2 CAPSULE(S);?FREQUENCY : 3 TIMES A DAY;?
     Route: 048
     Dates: start: 20250413, end: 20250419
  2. BALSALAZIDE [Concomitant]
     Active Substance: BALSALAZIDE
  3. GABAPENTIN [Concomitant]
     Active Substance: GABAPENTIN
  4. RIZATRIPTAN [Concomitant]
     Active Substance: RIZATRIPTAN
  5. AIMOVIG [Concomitant]
     Active Substance: ERENUMAB-AOOE
  6. MEDROL [Concomitant]
     Active Substance: METHYLPREDNISOLONE
  7. Teraconazole cream [Concomitant]
  8. KETOCONAZOLE [Concomitant]
     Active Substance: KETOCONAZOLE
  9. METROGEL [Concomitant]
     Active Substance: METRONIDAZOLE
  10. One a Day Women^s vitamins [Concomitant]
  11. MINERALS\VITAMINS [Concomitant]
     Active Substance: MINERALS\VITAMINS
  12. Citraca [Concomitant]
  13. BIOTIN [Concomitant]
     Active Substance: BIOTIN
  14. SACCHAROMYCES CEREVISIAE [Suspect]
     Active Substance: SACCHAROMYCES CEREVISIAE

REACTIONS (5)
  - Eye disorder [None]
  - Stevens-Johnson syndrome [None]
  - Oral disorder [None]
  - Oesophageal disorder [None]
  - Diarrhoea [None]

NARRATIVE: CASE EVENT DATE: 20250426
